FAERS Safety Report 10676293 (Version 1)
Quarter: 2014Q4

REPORT INFORMATION
  Report Type: Spontaneous
  Country: DE (occurrence: DE)
  Receive Date: 20141226
  Receipt Date: 20141226
  Transmission Date: 20150529
  Serious: Yes (Hospitalization, Other)
  Sender: FDA-Public Use
  Company Number: DE-DRREDDYS-GER/GER/14/0045060

PATIENT
  Age: 50 Year
  Sex: Female

DRUGS (10)
  1. CIPRALEX [Interacting]
     Active Substance: ESCITALOPRAM OXALATE
     Indication: PRODUCT USED FOR UNKNOWN INDICATION
     Route: 048
     Dates: start: 20130109, end: 20130116
  2. VENLAFAXINE [Suspect]
     Active Substance: VENLAFAXINE HYDROCHLORIDE
     Indication: PRODUCT USED FOR UNKNOWN INDICATION
     Route: 048
     Dates: start: 20130225, end: 20130227
  3. CIPRALEX [Interacting]
     Active Substance: ESCITALOPRAM OXALATE
     Route: 048
     Dates: start: 20130117, end: 20130220
  4. ABILIFY [Interacting]
     Active Substance: ARIPIPRAZOLE
     Indication: PRODUCT USED FOR UNKNOWN INDICATION
     Route: 048
     Dates: start: 20130202, end: 20130305
  5. REMERGIL [Concomitant]
     Active Substance: MIRTAZAPINE
     Indication: PRODUCT USED FOR UNKNOWN INDICATION
     Route: 048
  6. VENLAFAXINE [Suspect]
     Active Substance: VENLAFAXINE HYDROCHLORIDE
     Route: 048
     Dates: start: 20130228, end: 20130228
  7. CIPRALEX [Interacting]
     Active Substance: ESCITALOPRAM OXALATE
     Route: 048
     Dates: start: 20130302
  8. CIPRALEX [Interacting]
     Active Substance: ESCITALOPRAM OXALATE
     Route: 048
     Dates: start: 20130221, end: 20130222
  9. CIPRALEX [Interacting]
     Active Substance: ESCITALOPRAM OXALATE
     Route: 048
     Dates: start: 20130228, end: 20130301
  10. ABILIFY [Interacting]
     Active Substance: ARIPIPRAZOLE
     Route: 048
     Dates: start: 20130306

REACTIONS (3)
  - Drug interaction [Unknown]
  - Restlessness [Recovered/Resolved]
  - Agitation [Recovered/Resolved]

NARRATIVE: CASE EVENT DATE: 20130224
